FAERS Safety Report 13788069 (Version 1)
Quarter: 2017Q3

REPORT INFORMATION
  Report Type: Spontaneous
  Country: US (occurrence: US)
  Receive Date: 20170725
  Receipt Date: 20170725
  Transmission Date: 20171127
  Serious: No
  Sender: FDA-Public Use
  Company Number: US-UNITED THERAPEUTICS-UNT-2017-002601

PATIENT
  Age: 65 Year
  Sex: Female
  Weight: 110.2 kg

DRUGS (1)
  1. REMODULIN [Suspect]
     Active Substance: TREPROSTINIL
     Indication: PULMONARY HYPERTENSION
     Dosage: 0.038 ?G/KG, CONTINUING
     Route: 041
     Dates: start: 20160406

REACTIONS (3)
  - Arthralgia [Unknown]
  - Arthritis [Unknown]
  - Joint injury [Unknown]

NARRATIVE: CASE EVENT DATE: 201702
